FAERS Safety Report 7651755-4 (Version None)
Quarter: 2011Q3

REPORT INFORMATION
  Report Type: 
  Country: None (occurrence: None)
  Receive Date: 20110802
  Receipt Date: 20110727
  Transmission Date: 20111222
  Serious: Yes (Life-Threatening)
  Sender: FDA-Public Use
  Company Number: JP-MERCK-1107USA03897

PATIENT
  Age: 59 Year
  Sex: Female

DRUGS (4)
  1. EMEND [Suspect]
     Indication: PROPHYLAXIS OF NAUSEA AND VOMITING
     Route: 048
     Dates: start: 20100827, end: 20100827
  2. EMEND [Suspect]
     Route: 048
     Dates: start: 20100828, end: 20100901
  3. CARBOPLATIN [Concomitant]
     Route: 065
  4. TAXOL [Suspect]
     Indication: UTERINE CANCER
     Route: 041
     Dates: start: 20100827, end: 20100827

REACTIONS (1)
  - DUODENAL PERFORATION [None]
